FAERS Safety Report 7370045-0 (Version None)
Quarter: 2011Q1

REPORT INFORMATION
  Report Type: 
  Country: None (occurrence: None)
  Receive Date: 20110323
  Receipt Date: 20110309
  Transmission Date: 20110831
  Serious: Yes (Life-Threatening, Hospitalization)
  Sender: FDA-Public Use
  Company Number: CN-BAYER-2011-025064

PATIENT
  Age: 62 Year
  Sex: Male

DRUGS (5)
  1. ACETYLSALICYLIC ACID SRT [Suspect]
     Indication: ANTIPLATELET THERAPY
     Dosage: 300 MG, QD
     Route: 048
  2. PRAVASTATIN [Suspect]
  3. CILOSTAZOL [Concomitant]
     Indication: ANTICOAGULANT THERAPY
  4. CLOPIDOGREL [Concomitant]
     Indication: ANTIPLATELET THERAPY
     Dosage: 75 MG, QD
     Route: 048
  5. CEPHALOSPORINS AND RELATED SUBSTANCES [Suspect]

REACTIONS (4)
  - TOXIC EPIDERMAL NECROLYSIS [None]
  - STAPHYLOCOCCAL BACTERAEMIA [None]
  - WOUND INFECTION STAPHYLOCOCCAL [None]
  - COUGH [None]
